FAERS Safety Report 4556684-0 (Version None)
Quarter: 2005Q1

REPORT INFORMATION
  Report Type: 
  Country: None (occurrence: None)
  Receive Date: 20050120
  Receipt Date: 20050110
  Transmission Date: 20050727
  Serious: Yes (Other)
  Sender: FDA-Public Use
  Company Number: US-AMGEN-US106950

PATIENT
  Sex: Male

DRUGS (2)
  1. ETANERCEPT [Suspect]
     Indication: PSORIASIS
     Route: 058
     Dates: start: 20040621, end: 20041118
  2. ALBUTEROL [Concomitant]
     Dates: start: 19960101

REACTIONS (4)
  - ARTHRALGIA [None]
  - DYSPNOEA [None]
  - OEDEMA PERIPHERAL [None]
  - RHEUMATOID FACTOR INCREASED [None]
